FAERS Safety Report 6202661-3 (Version None)
Quarter: 2009Q2

REPORT INFORMATION
  Report Type: 
  Country: None (occurrence: None)
  Receive Date: 20090526
  Receipt Date: 20090526
  Transmission Date: 20091009
  Serious: Yes (Other)
  Sender: FDA-Public Use
  Company Number: US-PFIZER INC-2009195379

PATIENT
  Sex: Female
  Weight: 99 kg

DRUGS (9)
  1. LIPITOR [Suspect]
     Indication: BLOOD CHOLESTEROL INCREASED
  2. GLIPIZIDE [Concomitant]
     Dosage: UNK
  3. COZAAR [Concomitant]
     Dosage: UNK
  4. CELEBREX [Concomitant]
     Dosage: UNK
  5. ONE-A-DAY [Concomitant]
     Dosage: UNK
  6. SKELAXIN [Concomitant]
     Dosage: UNK
  7. FUROSEMIDE [Concomitant]
     Dosage: UNK
  8. KLOR-CON [Concomitant]
     Dosage: UNK
  9. TAMOXIFEN [Concomitant]
     Indication: BREAST CANCER

REACTIONS (3)
  - BREAST CANCER RECURRENT [None]
  - HEPATIC ENZYME INCREASED [None]
  - LIVER INJURY [None]
